FAERS Safety Report 5454983-1 (Version None)
Quarter: 2007Q3

REPORT INFORMATION
  Report Type: 
  Country: None (occurrence: None)
  Receive Date: 20070917
  Receipt Date: 20070910
  Transmission Date: 20080115
  Serious: Yes (Other)
  Sender: FDA-Public Use
  Company Number: JP-PFIZER INC-2007070109

PATIENT
  Sex: Male
  Weight: 52 kg

DRUGS (21)
  1. ATARAX [Suspect]
     Indication: MALAISE
     Dosage: DAILY DOSE:25MG
     Route: 042
  2. LORAZEPAM [Suspect]
     Indication: MALAISE
     Route: 048
     Dates: start: 20070725, end: 20070809
  3. CARBENIN [Concomitant]
     Route: 042
     Dates: start: 20070810, end: 20070814
  4. MINOCYCLINE HCL [Concomitant]
     Route: 042
     Dates: start: 20070810, end: 20070814
  5. MICAFUNGIN [Concomitant]
     Route: 042
     Dates: start: 20070726, end: 20070821
  6. GRAN [Concomitant]
     Route: 042
     Dates: start: 20070811, end: 20070823
  7. DAIPHEN [Concomitant]
     Route: 048
     Dates: start: 20070718, end: 20070810
  8. AMIKACIN SULFATE [Concomitant]
     Route: 042
     Dates: start: 20070811, end: 20070814
  9. CEFTAZIDIME PENTAHYDRATE [Concomitant]
     Route: 042
     Dates: start: 20070813, end: 20070814
  10. IMMUNE GLOBULIN INTRAVENOUS (HUMAN) [Concomitant]
     Route: 042
     Dates: start: 20070813, end: 20070815
  11. ANTITHROMBIN III [Concomitant]
     Route: 042
     Dates: start: 20070813, end: 20070813
  12. ONCOVIN [Concomitant]
     Route: 042
     Dates: start: 20070727, end: 20070802
  13. THERARUBICIN [Concomitant]
     Route: 042
     Dates: start: 20070727, end: 20070728
  14. CYCLOPHOSPHAMIDE [Concomitant]
     Route: 042
     Dates: start: 20070727, end: 20070727
  15. DECADRON [Concomitant]
     Route: 042
     Dates: start: 20070727, end: 20070801
  16. LEUNASE [Concomitant]
     Dosage: DAILY DOSE:9500I.U.
     Route: 042
     Dates: start: 20070802, end: 20070802
  17. LEUNASE [Concomitant]
     Dosage: DAILY DOSE:9500I.U.
     Route: 042
     Dates: start: 20070810, end: 20070810
  18. LEUNASE [Concomitant]
     Dosage: DAILY DOSE:9500I.U.
     Route: 042
     Dates: start: 20070812, end: 20070812
  19. LEUNASE [Concomitant]
     Dosage: DAILY DOSE:95000I.U.
     Route: 042
     Dates: start: 20070815, end: 20070815
  20. PREDONINE [Concomitant]
     Route: 042
     Dates: start: 20070802, end: 20070810
  21. FLUMARIN [Concomitant]
     Route: 042
     Dates: start: 20070803, end: 20070810

REACTIONS (3)
  - ALTERED STATE OF CONSCIOUSNESS [None]
  - COORDINATION ABNORMAL [None]
  - DYSARTHRIA [None]
